FAERS Safety Report 13907129 (Version 1)
Quarter: 2017Q3

REPORT INFORMATION
  Report Type: Spontaneous
  Country: FR (occurrence: FR)
  Receive Date: 20170825
  Receipt Date: 20170825
  Transmission Date: 20171127
  Serious: Yes (Other)
  Sender: FDA-Public Use
  Company Number: FR-MERCK KGAA-2025107

PATIENT
  Sex: Male

DRUGS (4)
  1. OROCAL [Concomitant]
     Active Substance: CALCIUM CARBONATE
  2. NOVOTHYROX [Suspect]
     Active Substance: LEVOTHYROXINE SODIUM
     Indication: POST PROCEDURAL HYPOTHYROIDISM
     Dates: start: 1998
  3. NOVOTHYROX [Suspect]
     Active Substance: LEVOTHYROXINE SODIUM
  4. UN-ALFA [Suspect]
     Active Substance: ALFACALCIDOL

REACTIONS (13)
  - Blood thyroid stimulating hormone abnormal [Unknown]
  - Syncope [Unknown]
  - Gastrointestinal motility disorder [Unknown]
  - Nephrolithiasis [Unknown]
  - Paraesthesia [Unknown]
  - Myalgia [Unknown]
  - Fatigue [Unknown]
  - Muscle spasms [Unknown]
  - Dizziness [Unknown]
  - Blood creatinine increased [Unknown]
  - Tetany [Unknown]
  - Hypocalcaemia [Unknown]
  - Weight decreased [Unknown]

NARRATIVE: CASE EVENT DATE: 2013
